FAERS Safety Report 13697362 (Version 1)
Quarter: 2017Q2

REPORT INFORMATION
  Report Type: Report from Study
  Country: US (occurrence: US)
  Receive Date: 20170628
  Receipt Date: 20170628
  Transmission Date: 20170830
  Serious: Yes (Other)
  Sender: FDA-Public Use
  Company Number: US-BAYER-2017-122172

PATIENT
  Age: 7 Year
  Sex: Male

DRUGS (3)
  1. ASPIRIN. [Interacting]
     Active Substance: ASPIRIN
     Indication: CORONARY ARTERY ANEURYSM
  2. ASPIRIN. [Suspect]
     Active Substance: ASPIRIN
     Indication: KAWASAKI^S DISEASE
     Dosage: UNK
  3. WARFARIN [Interacting]
     Active Substance: WARFARIN
     Dosage: UNK

REACTIONS (6)
  - Labelled drug-drug interaction medication error [None]
  - Drug administration error [None]
  - Drug administered to patient of inappropriate age [None]
  - Product use in unapproved indication [None]
  - Epistaxis [None]
  - Off label use [None]
